FAERS Safety Report 5469836-2 (Version None)
Quarter: 2007Q3

REPORT INFORMATION
  Report Type: 
  Country: None (occurrence: None)
  Receive Date: 20070927
  Receipt Date: 20070801
  Transmission Date: 20080115
  Serious: No
  Sender: FDA-Public Use
  Company Number: US-BRISTOL-MYERS SQUIBB COMPANY-13865142

PATIENT
  Sex: Male

DRUGS (1)
  1. DASATINIB [Suspect]
     Indication: MASTOCYTOSIS

REACTIONS (1)
  - POLYNEUROPATHY [None]
